FAERS Safety Report 9855631 (Version 2)
Quarter: 2014Q4

REPORT INFORMATION
  Report Type: Spontaneous
  Country: US (occurrence: US)
  Receive Date: 20140130
  Receipt Date: 20141010
  Transmission Date: 20150529
  Serious: Yes (Death, Other)
  Sender: FDA-Public Use
  Company Number: US-009507513-1401USA013632

PATIENT
  Sex: Male

DRUGS (1)
  1. JANUVIA [Suspect]
     Active Substance: SITAGLIPTIN PHOSPHATE
     Indication: TYPE 2 DIABETES MELLITUS
     Dosage: UNK UNK, QD
     Route: 048
     Dates: start: 20100712, end: 20101211

REACTIONS (2)
  - Pancreatic carcinoma [Unknown]
  - Death [Fatal]

NARRATIVE: CASE EVENT DATE: 20110107
